FAERS Safety Report 6075885-6 (Version None)
Quarter: 2009Q1

REPORT INFORMATION
  Report Type: 
  Country: None (occurrence: None)
  Receive Date: 20090212
  Receipt Date: 20090209
  Transmission Date: 20090719
  Serious: Yes (Life-Threatening, Hospitalization, Other)
  Sender: FDA-Public Use
  Company Number: DE-AVENTIS-200813181DE

PATIENT
  Age: 74 Year
  Sex: Female
  Weight: 63 kg

DRUGS (7)
  1. ARAVA [Suspect]
     Route: 048
     Dates: start: 20070404, end: 20081205
  2. BLOPRESS [Concomitant]
     Route: 048
  3. AMLODIPINE [Concomitant]
     Route: 048
  4. PREDNISOLONE [Concomitant]
     Route: 048
     Dates: start: 20080501, end: 20081201
  5. CALCIGEN D [Concomitant]
     Indication: OSTEOPOROSIS
     Dosage: DOSE: 1X1 TABLET/DAY
     Route: 048
  6. HUMIRA [Concomitant]
     Indication: RHEUMATOID ARTHRITIS
     Dosage: DOSE: NOT REPORTED
     Route: 058
     Dates: start: 20071101, end: 20081001
  7. VOLTAREN [Concomitant]
     Dosage: DOSE: NOT REPORTED
     Route: 048

REACTIONS (10)
  - COUGH [None]
  - DYSGEUSIA [None]
  - INFECTION [None]
  - INFECTIOUS MONONUCLEOSIS [None]
  - NIGHT SWEATS [None]
  - PARAESTHESIA [None]
  - PULMONARY GRANULOMA [None]
  - PULMONARY TUBERCULOSIS [None]
  - PYREXIA [None]
  - WEIGHT DECREASED [None]
